FAERS Safety Report 13297599 (Version 1)
Quarter: 2017Q1

REPORT INFORMATION
  Report Type: Spontaneous
  Country: US (occurrence: US)
  Receive Date: 20170306
  Receipt Date: 20170306
  Transmission Date: 20170428
  Serious: No
  Sender: FDA-Public Use
  Company Number: US-DEPOMED, INC.-US-2016DEP009422

PATIENT

DRUGS (1)
  1. GRALISE [Suspect]
     Active Substance: GABAPENTIN
     Indication: POST CONCUSSION SYNDROME
     Dosage: 300 MG, UNK
     Route: 048

REACTIONS (4)
  - Heart rate increased [Unknown]
  - Product use issue [Unknown]
  - Feeling abnormal [Unknown]
  - Headache [Unknown]
